FAERS Safety Report 8342691-9 (Version None)
Quarter: 2012Q2

REPORT INFORMATION
  Report Type: 
  Country: None (occurrence: None)
  Receive Date: 20120502
  Receipt Date: 20120423
  Transmission Date: 20120825
  Serious: No
  Sender: FDA-Public Use
  Company Number: TPA2012A02353

PATIENT
  Age: 50 Year
  Sex: Female

DRUGS (1)
  1. ACTOS [Suspect]
     Indication: TYPE 2 DIABETES MELLITUS
     Dosage: 15 MG (15 MG, 1 IN 1 D), ORAL, 30 MG (30 MG, 1 IN 1 D), ORAL
     Route: 048

REACTIONS (5)
  - FLUID RETENTION [None]
  - MITRAL VALVE INCOMPETENCE [None]
  - DYSPNOEA EXERTIONAL [None]
  - AORTIC VALVE INCOMPETENCE [None]
  - OEDEMA PERIPHERAL [None]
